FAERS Safety Report 9491165 (Version 2)
Quarter: 2013Q1

REPORT INFORMATION
  Report Type: Not Available
  Country: US (occurrence: US)
  Receive Date: 20120619
  Receipt Date: 20120619
  Transmission Date: 20140127
  Serious: No
  Sender: FDA-Public Use
  Company Number: US-LUNDBECK-DKLU1061297

PATIENT
  Age: 2 None
  Sex: Male
  Weight: 8.63 kg

DRUGS (7)
  1. SABRIL (FOR ORAL SOLUTION) [Suspect]
     Indication: INFANTILE SPASMS
     Route: 048
     Dates: start: 20100113
  2. SABRIL (FOR ORAL SOLUTION) [Suspect]
     Route: 048
     Dates: start: 20091201, end: 20100113
  3. SABRIL (FOR ORAL SOLUTION) [Suspect]
     Route: 048
     Dates: start: 200802, end: 20091130
  4. KEPPRA [Concomitant]
     Indication: CONVULSION
     Route: 048
     Dates: start: 2008
  5. PRIMIDONE [Concomitant]
     Indication: CONVULSION
     Route: 048
     Dates: start: 2008
  6. CHLORAL HYDRATE [Concomitant]
     Indication: CONVULSION
     Route: 048
     Dates: start: 2008
  7. NO DRUG NAME [Concomitant]

REACTIONS (1)
  - Insomnia [Not Recovered/Not Resolved]
